FAERS Safety Report 13026689 (Version 1)
Quarter: 2016Q4

REPORT INFORMATION
  Report Type: Spontaneous
  Country: US (occurrence: US)
  Receive Date: 20161214
  Receipt Date: 20161214
  Transmission Date: 20170207
  Serious: Yes (Hospitalization)
  Sender: FDA-Public Use
  Company Number: US-JNJFOC-20161210961

PATIENT
  Age: 66 Year
  Sex: Female
  Weight: 69.39 kg

DRUGS (8)
  1. ZOLPIDEM [Concomitant]
     Active Substance: ZOLPIDEM\ZOLPIDEM TARTRATE
     Indication: INSOMNIA
     Route: 065
     Dates: start: 20161101
  2. NIRAPARIB [Concomitant]
     Active Substance: NIRAPARIB
     Indication: NEOPLASM MALIGNANT
     Route: 048
     Dates: start: 20161026, end: 20161107
  3. PROMETHAZINE [Concomitant]
     Active Substance: PROMETHAZINE\PROMETHAZINE HYDROCHLORIDE
     Indication: NAUSEA
     Route: 065
     Dates: start: 20161101
  4. PROMETHAZINE [Concomitant]
     Active Substance: PROMETHAZINE\PROMETHAZINE HYDROCHLORIDE
     Indication: VOMITING
     Route: 065
     Dates: start: 20161101
  5. RANITIDINE HYDROCHLORIDE. [Concomitant]
     Active Substance: RANITIDINE HYDROCHLORIDE
     Indication: GASTROOESOPHAGEAL REFLUX DISEASE
     Route: 065
     Dates: start: 20161101
  6. FENTANYL. [Suspect]
     Active Substance: FENTANYL
     Indication: ABDOMINAL PAIN
     Route: 062
     Dates: start: 20161102, end: 20161108
  7. MACROGOL [Concomitant]
     Active Substance: POLYETHYLENE GLYCOLS
     Indication: CONSTIPATION
     Route: 065
     Dates: start: 20161101
  8. LORAZEPAM. [Concomitant]
     Active Substance: LORAZEPAM
     Indication: INSOMNIA
     Route: 065
     Dates: start: 20161102

REACTIONS (8)
  - Disorientation [Unknown]
  - Diplopia [Unknown]
  - Asthenia [Unknown]
  - Confusional state [Unknown]
  - Hypersomnia [Unknown]
  - Hallucination, visual [Unknown]
  - Hypophagia [Unknown]
  - Nausea [Unknown]

NARRATIVE: CASE EVENT DATE: 201611
